FAERS Safety Report 6488026-8 (Version None)
Quarter: 2009Q4

REPORT INFORMATION
  Report Type: 
  Country: None (occurrence: None)
  Receive Date: 20091210
  Receipt Date: 20091201
  Transmission Date: 20100525
  Serious: Yes (Hospitalization)
  Sender: FDA-Public Use
  Company Number: PHHY2009MX53032

PATIENT
  Age: 70 Year
  Sex: Female

DRUGS (2)
  1. EXFORGE [Suspect]
     Indication: HYPERTENSION
     Dosage: 2 TABLETS (160/10 MG) PER DAY
     Route: 048
     Dates: start: 20090901, end: 20091115
  2. METFORMIN HCL [Concomitant]
     Dosage: 2 TABLETS PER DAY

REACTIONS (2)
  - BONE FISSURE [None]
  - HIP SURGERY [None]
